FAERS Safety Report 16617273 (Version 1)
Quarter: 2019Q3

REPORT INFORMATION
  Report Type: Spontaneous
  Country: PL (occurrence: PL)
  Receive Date: 20190723
  Receipt Date: 20190723
  Transmission Date: 20191004
  Serious: Yes (Other)
  Sender: FDA-Public Use
  Company Number: PL-PFIZER INC-2019308439

PATIENT
  Age: 15 Year
  Sex: Female

DRUGS (3)
  1. PREDNISONE. [Interacting]
     Active Substance: PREDNISONE
     Dosage: UNK
  2. FLUCONAZOLE. [Suspect]
     Active Substance: FLUCONAZOLE
     Dosage: UNK
  3. VINCRISTINE [Interacting]
     Active Substance: VINCRISTINE
     Dosage: UNK

REACTIONS (3)
  - Drug interaction [Unknown]
  - Intestinal obstruction [Unknown]
  - Intestinal perforation [Unknown]
